FAERS Safety Report 9154640 (Version 2)
Quarter: 2013Q2

REPORT INFORMATION
  Report Type: Spontaneous
  Country: IN (occurrence: None)
  Receive Date: 20130207
  Receipt Date: 20130401
  Transmission Date: 20140414
  Serious: Yes (Other)
  Sender: FDA-Public Use
  Company Number: UCM201301-000005

PATIENT
  Age: 12 Year
  Sex: Male

DRUGS (1)
  1. LAMOTRIGINE [Suspect]
     Dates: start: 200909

REACTIONS (4)
  - Vanishing bile duct syndrome [None]
  - Rash macular [None]
  - Drug-induced liver injury [None]
  - Skin hyperpigmentation [None]
